FAERS Safety Report 7803043-0 (Version None)
Quarter: 2011Q4

REPORT INFORMATION
  Report Type: 
  Country: None (occurrence: None)
  Receive Date: 20111007
  Receipt Date: 20110929
  Transmission Date: 20120403
  Serious: Yes (Death, Hospitalization)
  Sender: FDA-Public Use
  Company Number: NL-ACTELION-A-CH2011-54811

PATIENT
  Sex: Female
  Weight: 85.1 kg

DRUGS (3)
  1. REVATIO [Suspect]
     Dosage: 60 MG, TID
     Route: 048
     Dates: start: 20091208
  2. TRACLEER [Suspect]
     Indication: PULMONARY ARTERIAL HYPERTENSION
     Dosage: 125 MG, BID
     Route: 048
     Dates: start: 20091208
  3. TREPROSTINIL [Concomitant]
     Dosage: 11 MG, BID
     Route: 048
     Dates: start: 20071219

REACTIONS (5)
  - CHEST PAIN [None]
  - CATHETERISATION CARDIAC [None]
  - CORONARY ARTERY DISEASE [None]
  - ENDARTERECTOMY [None]
  - CORONARY ARTERY BYPASS [None]
